FAERS Safety Report 9492546 (Version 3)
Quarter: 2013Q3

REPORT INFORMATION
  Report Type: Report from Study
  Country: GB (occurrence: GB)
  Receive Date: 20130830
  Receipt Date: 20130918
  Transmission Date: 20140515
  Serious: Yes (Other)
  Sender: FDA-Public Use
  Company Number: GB-AMGEN-GBRCT2013051992

PATIENT
  Age: 29 Year
  Sex: Female
  Weight: 76.19 kg

DRUGS (1)
  1. DENOSUMAB [Suspect]
     Indication: BONE GIANT CELL TUMOUR
     Dosage: UNK
     Dates: start: 20111017

REACTIONS (1)
  - Abortion spontaneous [Unknown]
